FAERS Safety Report 23649215 (Version 2)
Quarter: 2024Q1

REPORT INFORMATION
  Report Type: Spontaneous
  Country: KR (occurrence: KR)
  Receive Date: 20240319
  Receipt Date: 20240320
  Transmission Date: 20240410
  Serious: Yes (Other)
  Sender: FDA-Public Use
  Company Number: KR-PFIZER INC-PV202400036825

PATIENT
  Age: 6 Year
  Sex: Male

DRUGS (2)
  1. NGENLA [Suspect]
     Active Substance: SOMATROGON-GHLA
     Dosage: 30 MG, WEEKLY
     Route: 058
     Dates: start: 20240303, end: 20240310
  2. NGENLA [Suspect]
     Active Substance: SOMATROGON-GHLA
     Dosage: 35 MG, WEEKLY
     Route: 058
     Dates: start: 20240316, end: 20240316

REACTIONS (3)
  - Syncope [Recovered/Resolved]
  - Seizure [Recovered/Resolved]
  - Loss of consciousness [Recovered/Resolved]

NARRATIVE: CASE EVENT DATE: 20240316
